FAERS Safety Report 7053788-8 (Version None)
Quarter: 2010Q4

REPORT INFORMATION
  Report Type: 
  Country: None (occurrence: None)
  Receive Date: 20101020
  Receipt Date: 20101011
  Transmission Date: 20110411
  Serious: Yes (Death)
  Sender: FDA-Public Use
  Company Number: B0680060A

PATIENT
  Age: 87 Year
  Sex: Male

DRUGS (1)
  1. MELPHALAN HYDROCHLORIDE [Suspect]
     Route: 050

REACTIONS (1)
  - DEATH [None]
